FAERS Safety Report 20779830 (Version 1)
Quarter: 2022Q2

REPORT INFORMATION
  Report Type: Spontaneous
  Country: US (occurrence: US)
  Receive Date: 20220503
  Receipt Date: 20220503
  Transmission Date: 20220721
  Serious: No
  Sender: FDA-Public Use
  Company Number: US-PFIZER INC-202200020694

PATIENT
  Sex: Male

DRUGS (2)
  1. VIAGRA [Suspect]
     Active Substance: SILDENAFIL CITRATE
     Dosage: 100 MG
  2. VIAGRA [Suspect]
     Active Substance: SILDENAFIL CITRATE
     Dosage: 25 MG

REACTIONS (3)
  - Device ineffective [Unknown]
  - Suspected counterfeit product [Not Recovered/Not Resolved]
  - Counterfeit product administered [Not Recovered/Not Resolved]

NARRATIVE: CASE EVENT DATE: 20210101
